FAERS Safety Report 8152950-0 (Version None)
Quarter: 2012Q1

REPORT INFORMATION
  Report Type: 
  Country: None (occurrence: None)
  Receive Date: 20120221
  Receipt Date: 20120215
  Transmission Date: 20120608
  Serious: Yes (Other)
  Sender: FDA-Public Use
  Company Number: JP-SANOFI-AVENTIS-2012SA004386

PATIENT

DRUGS (1)
  1. ALLEGRA [Suspect]
     Dosage: STRENGTH: 60 MG
     Route: 048

REACTIONS (1)
  - JAUNDICE [None]
